FAERS Safety Report 5895641-9 (Version None)
Quarter: 2008Q3

REPORT INFORMATION
  Report Type: 
  Country: None (occurrence: None)
  Receive Date: 20080924
  Receipt Date: 20080115
  Transmission Date: 20090109
  Serious: Yes (Death, Hospitalization)
  Sender: FDA-Public Use
  Company Number: US-ASTRAZENECA-2006UW27356

PATIENT
  Age: 624 Month
  Sex: Female

DRUGS (5)
  1. SEROQUEL [Suspect]
     Indication: BIPOLAR DISORDER
     Route: 048
     Dates: start: 19990101
  2. SEROQUEL [Suspect]
     Indication: DEPRESSION
     Route: 048
     Dates: start: 19990101
  3. CLOZARIL [Concomitant]
  4. WELLBUTRIN [Concomitant]
     Dates: start: 19850101, end: 20060101
  5. CLONAZEPAM [Concomitant]
     Dates: start: 19850101, end: 20060101

REACTIONS (2)
  - PAIN [None]
  - PANCREATITIS [None]
